FAERS Safety Report 10184624 (Version 2)
Quarter: 2014Q2

REPORT INFORMATION
  Report Type: Spontaneous
  Country: JP (occurrence: None)
  Receive Date: 20140519
  Receipt Date: 20140620
  Transmission Date: 20141212
  Serious: Yes (Hospitalization, Other)
  Sender: FDA-Public Use
  Company Number: ABR_01650_2014

PATIENT
  Age: 48 Year
  Sex: Male
  Weight: 62.2 kg

DRUGS (3)
  1. GLIADEL [Suspect]
     Indication: MALIGNANT GLIOMA
     Dosage: 7 DF 1X [53.9 MG] INTRACEREBRAL
     Route: 042
     Dates: start: 20140214
  2. RAVONAL [Suspect]
     Indication: PRODUCT USED FOR UNKNOWN INDICATION
     Dosage: 4 GM QD INTRAVENOUS (NOT OTHERWISE SPECIFIED)
     Route: 042
     Dates: start: 20140215
  3. AMINOLEVULINIC ACID HYDROCHLORIDE [Concomitant]

REACTIONS (2)
  - Brain oedema [None]
  - Hepatic function abnormal [None]
